FAERS Safety Report 9438373 (Version 1)
Quarter: 2013Q3

REPORT INFORMATION
  Report Type: Spontaneous
  Country: US (occurrence: US)
  Receive Date: 20130802
  Receipt Date: 20130802
  Transmission Date: 20140515
  Serious: Yes (Hospitalization)
  Sender: FDA-Public Use
  Company Number: US-BRISTOL-MYERS SQUIBB COMPANY-17038787

PATIENT
  Age: 79 Year
  Sex: Female
  Weight: 76.81 kg

DRUGS (3)
  1. COUMADIN [Suspect]
  2. TREPROSTINIL [Suspect]
     Indication: PULMONARY ARTERIAL HYPERTENSION
     Dosage: 1 DF = 18-54 MICROGRAMS
     Route: 055
     Dates: start: 20120105
  3. LETAIRIS [Concomitant]

REACTIONS (1)
  - International normalised ratio increased [Unknown]
